FAERS Safety Report 15129513 (Version 3)
Quarter: 2018Q3

REPORT INFORMATION
  Report Type: Spontaneous
  Country: TR (occurrence: TR)
  Receive Date: 20180711
  Receipt Date: 20180815
  Transmission Date: 20181010
  Serious: Yes (Hospitalization)
  Sender: FDA-Public Use
  Company Number: TR-NOVOPROD-609568

PATIENT
  Age: 14 Year
  Sex: Male
  Weight: 50 kg

DRUGS (1)
  1. NORDITROPIN [Suspect]
     Active Substance: SOMATROPIN
     Indication: GROWTH HORMONE DEFICIENCY
     Dosage: 1.5 MG FOR 5 DAYS, 1.4 MG FOR A DAY AND PAUSE FOR A DAY WEEKLY
     Route: 058
     Dates: start: 20171012

REACTIONS (9)
  - Injection site swelling [Recovered/Resolved]
  - Injection site pruritus [Unknown]
  - Pain in extremity [Recovered/Resolved]
  - Injection site pruritus [Recovered/Resolved]
  - Muscular weakness [Recovered/Resolved]
  - Wrong technique in product usage process [Unknown]
  - Herpes zoster [Recovering/Resolving]
  - Inappropriate schedule of drug administration [Unknown]
  - Injection site pain [Unknown]

NARRATIVE: CASE EVENT DATE: 201803
